FAERS Safety Report 4439138-1 (Version None)
Quarter: 2004Q3

REPORT INFORMATION
  Report Type: 
  Country: None (occurrence: None)
  Receive Date: 20040901
  Receipt Date: 20040629
  Transmission Date: 20050211
  Serious: Yes (Death, Hospitalization)
  Sender: FDA-Public Use
  Company Number: PHHO2004CA09248

PATIENT
  Age: 67 Year
  Sex: Male

DRUGS (9)
  1. CLOZARIL [Suspect]
     Indication: SCHIZOPHRENIA
     Dosage: UNSPECIFIED
     Route: 048
     Dates: start: 20040126
  2. CLOZARIL [Suspect]
     Dosage: 75 MG, BID
     Route: 048
  3. ASPIRIN [Concomitant]
  4. FUROSEMIDE [Concomitant]
  5. PANTOLOC [Concomitant]
  6. ZYPREXA [Concomitant]
  7. VITAMIN B 1-6-12 [Concomitant]
  8. PENTA-3B [Concomitant]
  9. FERROUS SULFATE TAB [Concomitant]

REACTIONS (4)
  - ASTHENIA [None]
  - CARDIAC FAILURE [None]
  - HYPOTENSION [None]
  - OEDEMA PERIPHERAL [None]
